FAERS Safety Report 23283478 (Version 1)
Quarter: 2023Q4

REPORT INFORMATION
  Report Type: Spontaneous
  Country: BR (occurrence: BR)
  Receive Date: 20231211
  Receipt Date: 20231211
  Transmission Date: 20240110
  Serious: Yes (Hospitalization)
  Sender: FDA-Public Use
  Company Number: BR-BAYER-2023A173770

PATIENT
  Age: 41 Year
  Sex: Female

DRUGS (4)
  1. NAPROXEN SODIUM [Suspect]
     Active Substance: NAPROXEN\NAPROXEN SODIUM
     Indication: Migraine
     Dosage: 1 DF
     Dates: start: 20230912
  2. DESVENLAFAXINE [Concomitant]
     Active Substance: DESVENLAFAXINE
     Indication: Anxiety
     Dosage: UNK
     Dates: start: 20230310
  3. DESVENLAFAXINE [Concomitant]
     Active Substance: DESVENLAFAXINE
     Indication: Anxiety
     Dosage: UNK
     Dates: start: 202211
  4. TAPAZOL [THIAMAZOLE] [Concomitant]
     Indication: Graves^ disease
     Dates: start: 20190117

REACTIONS (1)
  - Burns second degree [Recovering/Resolving]
